FAERS Safety Report 11640457 (Version 4)
Quarter: 2015Q4

REPORT INFORMATION
  Report Type: Report from Study
  Country: US (occurrence: US)
  Receive Date: 20151019
  Receipt Date: 20151228
  Transmission Date: 20160304
  Serious: Yes (Hospitalization)
  Sender: FDA-Public Use
  Company Number: US-JNJFOC-20151007354

PATIENT
  Age: 49 Year
  Sex: Female
  Weight: 93.2 kg

DRUGS (7)
  1. VITAMIN D3 [Concomitant]
     Active Substance: CHOLECALCIFEROL
     Indication: NUTRITIONAL SUPPLEMENTATION
     Route: 048
     Dates: start: 201504
  2. ADVIL [Concomitant]
     Active Substance: IBUPROFEN
     Indication: ANKYLOSING SPONDYLITIS
     Route: 048
     Dates: start: 2013
  3. ADVIL [Concomitant]
     Active Substance: IBUPROFEN
     Indication: ANKYLOSING SPONDYLITIS
     Route: 048
     Dates: start: 2013, end: 20150601
  4. GOLIMUMAB [Suspect]
     Active Substance: GOLIMUMAB
     Route: 042
  5. TRAMADOL. [Concomitant]
     Active Substance: TRAMADOL
     Route: 048
  6. GOLIMUMAB [Suspect]
     Active Substance: GOLIMUMAB
     Indication: ANKYLOSING SPONDYLITIS
     Route: 042
     Dates: start: 20150618
  7. CENTRUM NOS [Concomitant]
     Indication: NUTRITIONAL SUPPLEMENTATION
     Dosage: 1 TEASPOON
     Route: 048
     Dates: start: 201504

REACTIONS (1)
  - Pancreatitis [Recovered/Resolved]

NARRATIVE: CASE EVENT DATE: 20151006
